FAERS Safety Report 8033627-9 (Version None)
Quarter: 2012Q1

REPORT INFORMATION
  Report Type: 
  Country: None (occurrence: None)
  Receive Date: 20120110
  Receipt Date: 20120106
  Transmission Date: 20120608
  Serious: No
  Sender: FDA-Public Use
  Company Number: US-PFIZER INC-2012004934

PATIENT
  Sex: Female
  Weight: 54.42 kg

DRUGS (4)
  1. HYDROXYCHLOROQUINE [Concomitant]
     Indication: SYSTEMIC LUPUS ERYTHEMATOSUS
     Dosage: 200 MG, 2X/DAY
  2. ACCURETIC [Concomitant]
     Indication: ANTICOAGULANT THERAPY
     Dosage: 325 MG, DAILY
     Route: 048
  3. NIFEDIPINE [Suspect]
     Indication: RAYNAUD'S PHENOMENON
  4. NIFEDIPINE [Suspect]
     Indication: CARDIOVASCULAR DISORDER
     Dosage: UNK

REACTIONS (1)
  - HEART RATE INCREASED [None]
